FAERS Safety Report 8847622 (Version 1)
Quarter: 2012Q4

REPORT INFORMATION
  Report Type: 
  Country: US (occurrence: US)
  Receive Date: 20121018
  Receipt Date: 20121018
  Transmission Date: 20130627
  Serious: Yes (Other)
  Sender: FDA-Public Use
  Company Number: CHPA2012US021759

PATIENT
  Age: 62 Year
  Sex: Female

DRUGS (2)
  1. TRIAMINIC CHEST AND NASAL CONGESTION [Suspect]
     Indication: UPPER RESPIRATORY TRACT CONGESTION
     Dosage: Half tsp, as needed
     Route: 048
  2. 4 WAY UNKNOWN [Suspect]
     Dosage: Unk, Unk

REACTIONS (8)
  - Asthma [Unknown]
  - Bronchitis [Unknown]
  - Burning sensation [Unknown]
  - Dyspnoea [Unknown]
  - Pneumonia [Unknown]
  - Dysphonia [Unknown]
  - Hypersensitivity [Unknown]
  - Incorrect dose administered [Unknown]
